FAERS Safety Report 9555791 (Version 1)
Quarter: 2013Q3

REPORT INFORMATION
  Report Type: Spontaneous
  Country: US (occurrence: None)
  Receive Date: 20130726
  Receipt Date: 20130726
  Transmission Date: 20140515
  Serious: Yes (Hospitalization)
  Sender: FDA-Public Use
  Company Number: UTC-024115

PATIENT
  Age: 29 Year
  Sex: Female
  Weight: 57.62 kg

DRUGS (2)
  1. REMODULIN [Suspect]
     Indication: PULMONARY ARTERIAL HYPERTENSION
     Dates: start: 20120611
  2. ADCIRCA (TADALAFIL) [Concomitant]

REACTIONS (3)
  - Device related sepsis [None]
  - Erythema [None]
  - Dermatitis contact [None]
